FAERS Safety Report 23057961 (Version 2)
Quarter: 2023Q4

REPORT INFORMATION
  Report Type: Spontaneous
  Country: US (occurrence: None)
  Receive Date: 20231012
  Receipt Date: 20231018
  Transmission Date: 20240110
  Serious: Yes (Hospitalization, Other)
  Sender: FDA-Public Use
  Company Number: 2023A226978

PATIENT
  Age: 56 Year
  Sex: Female
  Weight: 96.2 kg

DRUGS (2)
  1. SAPHNELO [Suspect]
     Active Substance: ANIFROLUMAB-FNIA
     Indication: Central nervous system lupus
     Dosage: 300MG/2ML
     Route: 042
     Dates: start: 20230925, end: 20230925
  2. SAPHNELO [Suspect]
     Active Substance: ANIFROLUMAB-FNIA
     Indication: Systemic lupus erythematosus
     Dosage: 300MG/2ML
     Route: 042
     Dates: start: 20230925, end: 20230925

REACTIONS (3)
  - Blood pressure increased [Unknown]
  - Cerebrovascular accident [Unknown]
  - Headache [Unknown]

NARRATIVE: CASE EVENT DATE: 20230925
